FAERS Safety Report 9384316 (Version 2)
Quarter: 2013Q3

REPORT INFORMATION
  Report Type: Report from Study
  Country: IL (occurrence: IL)
  Receive Date: 20130705
  Receipt Date: 20130807
  Transmission Date: 20140515
  Serious: Yes (Other)
  Sender: FDA-Public Use
  Company Number: PHHY2013IL069152

PATIENT
  Age: 65 Year
  Sex: Male

DRUGS (5)
  1. GILENYA [Suspect]
     Indication: MULTIPLE SCLEROSIS
     Dosage: 0.5 MG, QD
     Route: 048
     Dates: start: 20110823
  2. DOXAZOSIN [Concomitant]
  3. MODAFINIL [Concomitant]
  4. VITAMIN B12 [Concomitant]
  5. ATENOLOL [Concomitant]

REACTIONS (1)
  - Pancreatic carcinoma [Unknown]
